FAERS Safety Report 12903073 (Version 2)
Quarter: 2016Q4

REPORT INFORMATION
  Report Type: Report from Study
  Country: JP (occurrence: JP)
  Receive Date: 20161102
  Receipt Date: 20161103
  Transmission Date: 20170207
  Serious: Yes (Hospitalization, Other)
  Sender: FDA-Public Use
  Company Number: JP-PFIZER INC-2016506604

PATIENT
  Age: 47 Year
  Sex: Female
  Weight: 54.9 kg

DRUGS (4)
  1. SIROLIMUS. [Suspect]
     Active Substance: SIROLIMUS
     Indication: LYMPHANGIOLEIOMYOMATOSIS
     Dosage: 1 MG, 1X/DAY
     Route: 065
     Dates: start: 20150224, end: 20150525
  2. VITANEURIN [Concomitant]
     Indication: PROPHYLAXIS
     Dosage: UNK
     Route: 048
  3. ZOLADEX [Concomitant]
     Active Substance: GOSERELIN ACETATE
     Indication: LYMPHANGIOLEIOMYOMATOSIS
     Dosage: UNK
     Route: 065
     Dates: start: 20150525
  4. SIROLIMUS. [Suspect]
     Active Substance: SIROLIMUS
     Dosage: 1 MG, 1X/DAY
     Route: 065
     Dates: start: 20150803

REACTIONS (1)
  - Salpingo-oophorectomy bilateral [Recovered/Resolved]

NARRATIVE: CASE EVENT DATE: 20150626
